FAERS Safety Report 6082437-0 (Version None)
Quarter: 2009Q1

REPORT INFORMATION
  Report Type: 
  Country: None (occurrence: None)
  Receive Date: 20090218
  Receipt Date: 20090205
  Transmission Date: 20090719
  Serious: Yes (Death)
  Sender: FDA-Public Use
  Company Number: US-ROCHE-607655

PATIENT
  Sex: Male

DRUGS (17)
  1. VALGANCICLOVIR HCL [Suspect]
     Indication: DRUG USE FOR UNKNOWN INDICATION
     Route: 048
     Dates: start: 20081221
  2. VALGANCICLOVIR HCL [Suspect]
     Route: 048
     Dates: start: 20081222
  3. DURAGESIC-100 [Concomitant]
     Dosage: IN ANTERIOR CHEST WALL EVERY 72 HOURS
  4. PREDNISONE [Concomitant]
  5. ATENOLOL [Concomitant]
     Route: 048
     Dates: start: 20081221
  6. DILAUDID [Concomitant]
     Indication: PAIN
     Dosage: DOSE: 2-4 MG EVERY 6 HOURS AS NEEDED
  7. MORPHINE SULFATE [Concomitant]
     Dosage: FORM: PRE FILLED SYRINGE, ROUTE: INTRAVENOUS PUSH, STRENGTH: 4 MG/ML
     Route: 042
     Dates: start: 20081221
  8. FENTANYL [Concomitant]
     Dosage: DOSAGE: 1 PATCH EVERY 72 HOURS, STRENGTH: 50 UG/HOUR 1 PATCH
     Route: 061
     Dates: start: 20081221
  9. METHYLPREDNISOLONE 4MG TAB [Concomitant]
     Dosage: FORM: VIAL, STRENGTH: 125 MG/2 ML,DOSAGE REPORTED: 60 MG Q 8
     Route: 042
     Dates: start: 20081221
  10. PANTOPRAZOL [Concomitant]
     Dosage: FORM: VIAL
     Route: 042
     Dates: start: 20081221
  11. ENOXAPARIN SODIUM [Concomitant]
     Dosage: DOSE: 40 MG EVERY DAY, STRENGTH: 40 MG/ 0.4 ML SYRUP
     Route: 058
     Dates: start: 20081221
  12. LORAZEPAM [Concomitant]
     Indication: ANXIETY
     Dosage: STRENGTH: 2 MG/ML, DOSE: 1 MG EVERY 4 HOURS AS NEEDED, FORM: VIAL
     Route: 042
     Dates: start: 20081221
  13. HALOPERIDOL [Concomitant]
     Indication: AGITATION
     Dosage: STRENGTH: 5 MG/1 ML, DOSAGE: 4 MG EVERY 2 HOURS AS NEEDED
     Route: 042
     Dates: start: 20081221
  14. VANCOMYCIN HYDROCHLORIDE [Concomitant]
     Dosage: STRENGTH: 50 MG/ML 500 MG VIAL, RATE: 176.667 MLS/HR FOR 90 MINUTES,  EVERY 24 HOURS, FORM:VIAL
     Dates: start: 20081222
  15. MEROPENEM [Concomitant]
     Dosage: FORM: VIAL, RATE: 200 MLS/HOUR FOR 30 MINUTES, FREQUENCY: Q 6
     Dates: start: 20081222
  16. LACTULOSE [Concomitant]
     Dosage: STRENGTH: 20 GRAM/30 ML, DOSE: 15 GRAM (22.5 MLS) TUBE TWICE DAILY.
     Dates: start: 20081222
  17. MAGNESIUM SULFATE [Concomitant]
     Dosage: STRENGTH: 5 G/10 ML, RATE: 14 MLS/HR DURATION: 4 HOURS, FREQ: 0700
     Dates: start: 20081221

REACTIONS (1)
  - METASTASES TO CENTRAL NERVOUS SYSTEM [None]
